FAERS Safety Report 7987729-3 (Version None)
Quarter: 2011Q4

REPORT INFORMATION
  Report Type: 
  Country: None (occurrence: None)
  Receive Date: 20111216
  Receipt Date: 20110503
  Transmission Date: 20120403
  Serious: Yes (Other)
  Sender: FDA-Public Use
  Company Number: US-BRISTOL-MYERS SQUIBB COMPANY-15714496

PATIENT
  Age: 28 Year
  Sex: Female

DRUGS (1)
  1. ABILIFY [Suspect]
     Dosage: DURATION:APPROX 5 YEARS

REACTIONS (5)
  - FEELING ABNORMAL [None]
  - PAIN IN EXTREMITY [None]
  - SPEECH DISORDER [None]
  - DYSKINESIA [None]
  - HEADACHE [None]
